FAERS Safety Report 7918393-7 (Version None)
Quarter: 2011Q4

REPORT INFORMATION
  Report Type: 
  Country: None (occurrence: None)
  Receive Date: 20111114
  Receipt Date: 20111108
  Transmission Date: 20120403
  Serious: Yes (Other)
  Sender: FDA-Public Use
  Company Number: AUR-APL-2011-05754

PATIENT
  Age: 22 Year
  Sex: Male

DRUGS (2)
  1. VITAMIN D [Concomitant]
  2. LEVETIRACETAM [Suspect]
     Dosage: 1000 MG (500 MG, 2 IN 1 D), ORAL
     Route: 048
     Dates: start: 20080213

REACTIONS (2)
  - ARTHRALGIA [None]
  - BONE INFARCTION [None]
